FAERS Safety Report 5866482-3 (Version None)
Quarter: 2008Q3

REPORT INFORMATION
  Report Type: 
  Country: None (occurrence: None)
  Receive Date: 20080902
  Receipt Date: 20080902
  Transmission Date: 20090109
  Serious: Yes (Hospitalization)
  Sender: FDA-Public Use
  Company Number: PHEH1995US01084

PATIENT
  Sex: Male
  Weight: 76.1 kg

DRUGS (6)
  1. NEORAL [Suspect]
     Route: 048
     Dates: start: 19950521
  2. NYSTATIN [Concomitant]
     Dosage: 500,000 UNITS PO TID
  3. CISAPRIDE (CISAPRIDE) [Concomitant]
  4. GANCYCLOVIR (GANCICLOVIR) [Concomitant]
  5. CEFTIZOXIME (CEFTIZOXIME) [Concomitant]
  6. IMURAN [Concomitant]

REACTIONS (2)
  - LIVER FUNCTION TEST ABNORMAL [None]
  - TRANSPLANT REJECTION [None]
